FAERS Safety Report 7382887-6 (Version None)
Quarter: 2011Q1

REPORT INFORMATION
  Report Type: 
  Country: None (occurrence: None)
  Receive Date: 20110330
  Receipt Date: 20110228
  Transmission Date: 20110831
  Serious: Yes (Other)
  Sender: FDA-Public Use
  Company Number: US-BAYER-201030522NA

PATIENT
  Sex: Female
  Weight: 68 kg

DRUGS (5)
  1. YASMIN [Suspect]
     Indication: CONTRACEPTION
     Dosage: UNK UNK, QD
     Route: 048
     Dates: start: 20040101, end: 20040101
  2. CHLORASEPTIC [Concomitant]
  3. YAZ [Suspect]
     Indication: CONTRACEPTION
     Route: 048
     Dates: start: 20070901, end: 20071101
  4. MOTRIN [Concomitant]
     Dosage: 800 MG, QD
     Route: 048
  5. UNCODEABLE ^UNCLASSIFIABLE^ [Concomitant]
     Dosage: 650 MG, PRN
     Route: 048

REACTIONS (2)
  - DEEP VEIN THROMBOSIS [None]
  - PULMONARY EMBOLISM [None]
